FAERS Safety Report 10090280 (Version 2)
Quarter: 2014Q2

REPORT INFORMATION
  Report Type: Spontaneous
  Country: US (occurrence: US)
  Receive Date: 20140421
  Receipt Date: 20140513
  Transmission Date: 20141212
  Serious: Yes (Other)
  Sender: FDA-Public Use
  Company Number: US-BAYER-2014-056240

PATIENT
  Age: 34 Year
  Sex: Female

DRUGS (5)
  1. YASMIN [Suspect]
  2. VICODIN [Concomitant]
     Dosage: 0.05%, 30 GM, APPLY BID
     Dates: start: 20040712, end: 20040720
  3. DIFLORASONE DIACETATE [Concomitant]
  4. KEFLEX [Concomitant]
  5. ZITHROMAX [Concomitant]
     Dosage: 250 MG, Z PACK
     Dates: start: 20040909

REACTIONS (1)
  - Deep vein thrombosis [Recovered/Resolved]
